FAERS Safety Report 20415201 (Version 3)
Quarter: 2022Q1

REPORT INFORMATION
  Report Type: Report from Study
  Country: US (occurrence: US)
  Receive Date: 20220202
  Receipt Date: 20220301
  Transmission Date: 20220423
  Serious: Yes (Other)
  Sender: FDA-Public Use
  Company Number: US-AMGEN-USASP2022016019

PATIENT
  Sex: Female

DRUGS (15)
  1. ENBREL [Suspect]
     Active Substance: ETANERCEPT
     Indication: Rheumatoid arthritis
     Dosage: UNK
     Route: 065
     Dates: end: 2017
  2. ENBREL [Suspect]
     Active Substance: ETANERCEPT
  3. PROLIA [Suspect]
     Active Substance: DENOSUMAB
     Indication: Product used for unknown indication
     Dosage: UNK
     Route: 065
  4. BONIVA [Concomitant]
     Active Substance: IBANDRONATE SODIUM
     Dosage: UNK
     Route: 065
  5. OXYCODONE [Concomitant]
     Active Substance: OXYCODONE
     Dosage: 60 MILLIGRAM, Q4H
  6. TYLENOL [Concomitant]
     Active Substance: ACETAMINOPHEN
     Indication: Osteoporosis
  7. TYLENOL [Concomitant]
     Active Substance: ACETAMINOPHEN
     Indication: Osteoarthritis
  8. TYLENOL [Concomitant]
     Active Substance: ACETAMINOPHEN
     Indication: Fibromyalgia
  9. METHOCARBAMOL [Concomitant]
     Active Substance: METHOCARBAMOL
     Indication: Osteoporosis
  10. METHOCARBAMOL [Concomitant]
     Active Substance: METHOCARBAMOL
     Indication: Fibromyalgia
  11. METHOCARBAMOL [Concomitant]
     Active Substance: METHOCARBAMOL
     Indication: Osteoarthritis
  12. GABAPENTIN [Concomitant]
     Active Substance: GABAPENTIN
     Indication: Osteoporosis
  13. GABAPENTIN [Concomitant]
     Active Substance: GABAPENTIN
     Indication: Osteoarthritis
  14. GABAPENTIN [Concomitant]
     Active Substance: GABAPENTIN
     Indication: Fibromyalgia
  15. OXYCONTIN [Concomitant]
     Active Substance: OXYCODONE HYDROCHLORIDE
     Dosage: 60 MILLIGRAM, Q4H

REACTIONS (14)
  - Post procedural infection [Unknown]
  - Rheumatoid arthritis [Unknown]
  - Diabetes mellitus [Unknown]
  - Joint arthroplasty [Unknown]
  - Knee arthroplasty [Unknown]
  - Gastric bypass [Unknown]
  - Bone disorder [Unknown]
  - Hysterectomy [Unknown]
  - Chronic obstructive pulmonary disease [Unknown]
  - Osteoporosis [Unknown]
  - Restrictive pulmonary disease [Unknown]
  - Adverse reaction [Unknown]
  - COVID-19 [Unknown]
  - Oral candidiasis [Unknown]

NARRATIVE: CASE EVENT DATE: 20020101
